FAERS Safety Report 19706700 (Version 2)
Quarter: 2021Q3

REPORT INFORMATION
  Report Type: Spontaneous
  Country: IN (occurrence: IN)
  Receive Date: 20210817
  Receipt Date: 20210914
  Transmission Date: 20211014
  Serious: Yes (Other)
  Sender: FDA-Public Use
  Company Number: IN-LUPIN PHARMACEUTICALS INC.-2021-15446

PATIENT
  Sex: Male
  Weight: 1.56 kg

DRUGS (4)
  1. LIPIODOL [Suspect]
     Active Substance: ETHIODIZED OIL
     Indication: THERAPEUTIC EMBOLISATION
     Dosage: UNK (4 ML OF 20% LIPIODOL SOLUTION MIXED WITH 1 ML OF HISTOACRYL GLUE SOLUTION WAS FLUSHED WITH 5% D
     Route: 064
  2. BETAMETHASONE. [Suspect]
     Active Substance: BETAMETHASONE
     Indication: PRODUCT USED FOR UNKNOWN INDICATION
     Dosage: 12 MILLIGRAM (RECEIVED 2 DOSES, INJECTIONS ADMINISTERED 24H APART)
     Route: 064
  3. DEXTROSE. [Suspect]
     Active Substance: DEXTROSE
     Indication: THERAPEUTIC EMBOLISATION
     Dosage: 4 ML OF 20% LIPIODOL SOLUTION MIXED WITH 1 ML OF HISTOACRYL GLUE SOLUTION WAS FLUSHED WITH 5% DEXTRO
     Route: 064
  4. HISTOACRYL [Suspect]
     Active Substance: ENBUCRILATE
     Indication: THERAPEUTIC EMBOLISATION
     Dosage: 4 ML OF 20% LIPIODOL SOLUTION MIXED WITH 1 ML OF HISTOACRYL GLUE SOLUTION WAS FLUSHED WITH 5% DEXTRO
     Route: 064

REACTIONS (3)
  - Foetal exposure during pregnancy [Unknown]
  - Premature baby [Unknown]
  - Low birth weight baby [Recovering/Resolving]
